FAERS Safety Report 5329209-X (Version None)
Quarter: 2007Q2

REPORT INFORMATION
  Report Type: 
  Country: None (occurrence: None)
  Receive Date: 20070518
  Receipt Date: 20070508
  Transmission Date: 20071010
  Serious: Yes (Other)
  Sender: FDA-Public Use
  Company Number: IE-PFIZER INC-2007036689

PATIENT
  Sex: Female

DRUGS (2)
  1. CARDURA [Suspect]
     Route: 048
  2. ACE INHIBITOR NOS [Concomitant]

REACTIONS (1)
  - RENAL ARTERY STENOSIS [None]
